FAERS Safety Report 5961292-0 (Version None)
Quarter: 2008Q4

REPORT INFORMATION
  Report Type: 
  Country: None (occurrence: None)
  Receive Date: 20081121
  Receipt Date: 20081118
  Transmission Date: 20090506
  Serious: Yes (Death, Other)
  Sender: FDA-Public Use
  Company Number: SK-BRISTOL-MYERS SQUIBB COMPANY-14410013

PATIENT
  Age: 70 Year
  Sex: Male

DRUGS (2)
  1. ETOPOSIDE [Suspect]
     Dosage: DAY 1-3
  2. CARBOPLATIN [Suspect]
     Dosage: 1 DOSAGEFORM= 5 AREA UNDER CURVE

REACTIONS (4)
  - LEUKOPENIA [None]
  - MALIGNANT NEOPLASM PROGRESSION [None]
  - PARANEOPLASTIC SYNDROME [None]
  - THROMBOCYTOPENIA [None]
